FAERS Safety Report 21771570 (Version 2)
Quarter: 2023Q2

REPORT INFORMATION
  Report Type: Report from Study
  Country: US (occurrence: US)
  Receive Date: 20221223
  Receipt Date: 20230526
  Transmission Date: 20230721
  Serious: No
  Sender: FDA-Public Use
  Company Number: US-ABBVIE-4201760

PATIENT
  Sex: Male

DRUGS (1)
  1. SKYRIZI [Suspect]
     Active Substance: RISANKIZUMAB-RZAA
     Indication: Psoriasis
     Route: 058
     Dates: start: 20200313

REACTIONS (5)
  - Osteoarthritis [Unknown]
  - Arthropathy [Unknown]
  - Arthritis [Unknown]
  - Psoriatic arthropathy [Unknown]
  - Meniscus injury [Unknown]
